FAERS Safety Report 8215492-X (Version None)
Quarter: 2012Q1

REPORT INFORMATION
  Report Type: 
  Country: None (occurrence: None)
  Receive Date: 20120316
  Receipt Date: 20120306
  Transmission Date: 20120608
  Serious: Yes (Other)
  Sender: FDA-Public Use
  Company Number: NL-JNJFOC-20120203659

PATIENT
  Sex: Male
  Weight: 89 kg

DRUGS (10)
  1. TAMSULOSIN HCL [Concomitant]
     Route: 065
  2. ABIRATERONE ACETATE [Suspect]
     Route: 048
  3. ACENOCOUMAROL [Concomitant]
     Route: 065
  4. PANTOPRAZOLE [Concomitant]
     Route: 065
  5. ZOLADEX [Concomitant]
     Route: 065
  6. PAMIDRONATE DISODIUM [Concomitant]
     Route: 065
  7. PREDNISONE [Suspect]
     Indication: PROSTATE CANCER METASTATIC
     Route: 065
  8. PERINDOPRIL ERBUMINE [Concomitant]
     Route: 065
  9. ABIRATERONE ACETATE [Suspect]
     Indication: PROSTATE CANCER METASTATIC
     Route: 048
     Dates: start: 20111206, end: 20120128
  10. METOPROLOL SUCCINATE [Concomitant]
     Route: 065

REACTIONS (2)
  - PROSTATE CANCER [None]
  - BONE PAIN [None]
